FAERS Safety Report 5776497-1 (Version None)
Quarter: 2008Q2

REPORT INFORMATION
  Report Type: 
  Country: None (occurrence: None)
  Receive Date: 20080616
  Receipt Date: 20080306
  Transmission Date: 20081010
  Serious: Yes (Other)
  Sender: FDA-Public Use
  Company Number: 8030828

PATIENT
  Sex: Female

DRUGS (6)
  1. NIFEDIPINE [Suspect]
  2. FUROSEMIDE [Suspect]
  3. CO-AMOXICLAV /00756801/ [Suspect]
  4. ENOXAPARIN SODIUM [Suspect]
     Dosage: 40 MG 2/D
  5. STEROID NOS [Suspect]
  6. UNKNOWN BRONCHODILATOR [Concomitant]

REACTIONS (12)
  - BLOOD PRESSURE DECREASED [None]
  - CAESAREAN SECTION [None]
  - DRUG EXPOSURE DURING PREGNANCY [None]
  - DYSPNOEA [None]
  - GENERALISED OEDEMA [None]
  - HEADACHE [None]
  - LEFT VENTRICULAR HYPERTROPHY [None]
  - MITRAL VALVE INCOMPETENCE [None]
  - ORTHOPNOEA [None]
  - PERIPARTUM CARDIOMYOPATHY [None]
  - PULMONARY OEDEMA [None]
  - SINUS TACHYCARDIA [None]
